FAERS Safety Report 4282537-1 (Version None)
Quarter: 2004Q1

REPORT INFORMATION
  Report Type: 
  Country: None (occurrence: None)
  Receive Date: 20040129
  Receipt Date: 20040116
  Transmission Date: 20041129
  Serious: Yes (Death, Hospitalization)
  Sender: FDA-Public Use
  Company Number: NSADSS2002005049

PATIENT
  Age: 75 Year
  Sex: Female

DRUGS (4)
  1. REMICADE [Suspect]
     Indication: RHEUMATOID ARTHRITIS
     Dosage: INTRAVENOUS DRIP
     Route: 041
     Dates: start: 20001026, end: 20010501
  2. METHOTREXATE [Concomitant]
  3. GLUCOTROL [Concomitant]
  4. ALEVE [Concomitant]

REACTIONS (29)
  - ANTICONVULSANT DRUG LEVEL BELOW THERAPEUTIC [None]
  - ANXIETY [None]
  - BLOOD GLUCOSE DECREASED [None]
  - BLOOD GLUCOSE INCREASED [None]
  - BLOOD MAGNESIUM INCREASED [None]
  - BRAIN OEDEMA [None]
  - CARPAL TUNNEL SYNDROME [None]
  - CELLULITIS [None]
  - CONFUSIONAL STATE [None]
  - CONVULSION [None]
  - DEHYDRATION [None]
  - DIFFICULTY IN WALKING [None]
  - DYSKINESIA [None]
  - ESCHERICHIA URINARY TRACT INFECTION [None]
  - FALL [None]
  - GLIOBLASTOMA MULTIFORME [None]
  - GLIOMA [None]
  - HEPATIC ENZYME INCREASED [None]
  - METASTASES TO CENTRAL NERVOUS SYSTEM [None]
  - MUSCLE CRAMP [None]
  - NAUSEA [None]
  - OSTEOARTHRITIS [None]
  - PHARYNGOLARYNGEAL PAIN [None]
  - PROTEIN TOTAL DECREASED [None]
  - REFUSAL OF TREATMENT BY PATIENT [None]
  - RENAL CYST [None]
  - STATUS EPILEPTICUS [None]
  - THROMBOPHLEBITIS [None]
  - UTERINE ENLARGEMENT [None]
